FAERS Safety Report 19536983 (Version 3)
Quarter: 2021Q3

REPORT INFORMATION
  Report Type: Report from Study
  Country: GB (occurrence: GB)
  Receive Date: 20210713
  Receipt Date: 20210811
  Transmission Date: 20211014
  Serious: Yes (Death)
  Sender: FDA-Public Use
  Company Number: GB-ACCORD-231146

PATIENT
  Age: 71 Year
  Sex: Female

DRUGS (25)
  1. AMOXICILLIN. [Concomitant]
     Active Substance: AMOXICILLIN
     Indication: OROPHARYNGEAL PAIN
     Dosage: 250 MG, 3X/DAY 0.33/DAY
     Route: 048
     Dates: start: 201701, end: 201701
  2. DOMPERIDONE [Concomitant]
     Active Substance: DOMPERIDONE
     Dosage: 10 MG, 3X/DAY 0.33/DA
     Route: 048
     Dates: start: 20160518
  3. TETRACYCLINE [Concomitant]
     Active Substance: TETRACYCLINE
     Indication: LACRIMATION INCREASED
     Dosage: 250 MG, 3X/DAY FREQ:0.33 D
     Route: 048
     Dates: start: 20170327
  4. RENNIE [Concomitant]
     Indication: PRODUCT USED FOR UNKNOWN INDICATION
     Dosage: 680 MG, PRN (AS NEEDED)
     Dates: start: 20160516
  5. DOCETAXEL. [Suspect]
     Active Substance: DOCETAXEL
     Indication: PRODUCT USED FOR UNKNOWN INDICATION
     Dosage: 110 MG, EVERY 3 WEEKS
     Route: 042
     Dates: start: 20160609, end: 20160919
  6. TRASTUZUMAB. [Suspect]
     Active Substance: TRASTUZUMAB
     Indication: PRODUCT USED FOR UNKNOWN INDICATION
     Dosage: 588 MG, EVERY 3 WEEKS
     Route: 042
     Dates: start: 20191114
  7. CHLORAMPHENICOL [Concomitant]
     Active Substance: CHLORAMPHENICOL
     Indication: LACRIMATION INCREASED
     Route: 047
     Dates: start: 201610
  8. CYSTOPURIN [Concomitant]
     Indication: CYSTITIS
     Route: 048
     Dates: start: 20160918, end: 20160919
  9. CLOPIDOGREL [Concomitant]
     Active Substance: CLOPIDOGREL BISULFATE
     Indication: PRODUCT USED FOR UNKNOWN INDICATION
  10. PANTOPRAZOLE [Concomitant]
     Active Substance: PANTOPRAZOLE
     Indication: PRODUCT USED FOR UNKNOWN INDICATION
  11. RENNIE [Concomitant]
     Indication: PRODUCT USED FOR UNKNOWN INDICATION
     Dosage: 680 MG, PRN (AS NEEDED)
     Dates: start: 20160516
  12. TRASTUZUMAB. [Suspect]
     Active Substance: TRASTUZUMAB
     Indication: BREAST CANCER METASTATIC
     Route: 042
     Dates: start: 20160518
  13. ZOPICLONE [Concomitant]
     Active Substance: ZOPICLONE
     Indication: INSOMNIA
     Dosage: 3.75 MG, 3X/DAY FREQ:0.33 D
     Route: 048
     Dates: start: 2016
  14. PERTUZUMAB. [Suspect]
     Active Substance: PERTUZUMAB
     Indication: PRODUCT USED FOR UNKNOWN INDICATION
     Dosage: 420 MG, EVERY 3 WEEKS
     Route: 042
     Dates: start: 20160608
  15. RANITIDINE. [Concomitant]
     Active Substance: RANITIDINE
     Dosage: 150 MG, 2X/DAY 0.5/DAY
     Route: 048
     Dates: start: 20160518
  16. CALCIUM CARBONATE. [Concomitant]
     Active Substance: CALCIUM CARBONATE
     Route: 048
     Dates: start: 20160518
  17. LOPERAMIDE [Concomitant]
     Active Substance: LOPERAMIDE
     Route: 048
     Dates: start: 20160518
  18. OMEPRAZOLE. [Concomitant]
     Active Substance: OMEPRAZOLE
     Dosage: 20 MG, 1X/DAY
     Route: 048
     Dates: start: 20160627
  19. ONDANSETRON [Concomitant]
     Active Substance: ONDANSETRON
     Dosage: 8 MG, 2X/DAY FREQ: 0.5 D
     Route: 048
     Dates: start: 20160518
  20. TRIMETHOPRIM. [Concomitant]
     Active Substance: TRIMETHOPRIM
     Indication: CYSTITIS
     Dosage: 200 MG, 2X/DAY FREQ:0.5 D
     Route: 048
     Dates: start: 20160919, end: 20160922
  21. DOCETAXEL. [Suspect]
     Active Substance: DOCETAXEL
     Indication: BREAST CANCER METASTATIC
     Route: 042
     Dates: start: 20160519, end: 20160519
  22. PERTUZUMAB. [Suspect]
     Active Substance: PERTUZUMAB
     Indication: BREAST CANCER METASTATIC
     Route: 042
     Dates: start: 20160518, end: 20160518
  23. BENZYDAMINE [Concomitant]
     Active Substance: BENZYDAMINE
     Dosage: 10 ML, 4X/DAY/0.25 DAY
     Route: 061
     Dates: start: 20160518
  24. PARACETAMOL [Concomitant]
     Active Substance: ACETAMINOPHEN
     Route: 048
     Dates: start: 20160518
  25. IMODIUM [Concomitant]
     Active Substance: LOPERAMIDE HYDROCHLORIDE
     Dosage: DOSE:2
     Route: 048
     Dates: start: 20160518

REACTIONS (6)
  - Insomnia [Recovered/Resolved]
  - Lacrimation increased [Recovered/Resolved]
  - Cystitis [Recovered/Resolved]
  - Fatigue [Recovered/Resolved]
  - Disease progression [Fatal]
  - Paraesthesia [Recovered/Resolved]

NARRATIVE: CASE EVENT DATE: 201608
